FAERS Safety Report 11088060 (Version 5)
Quarter: 2015Q2

REPORT INFORMATION
  Report Type: Spontaneous
  Country: BR (occurrence: BR)
  Receive Date: 20150504
  Receipt Date: 20150518
  Transmission Date: 20150821
  Serious: Yes (Life-Threatening)
  Sender: FDA-Public Use
  Company Number: PHHY2015BR053137

PATIENT
  Age: 61 Year
  Sex: Female

DRUGS (2)
  1. ACLASTA [Suspect]
     Active Substance: ZOLEDRONIC ACID
     Indication: OSTEOPENIA
     Dosage: 5 MG/100 ML
     Route: 042
     Dates: start: 20131009
  2. ACLASTA [Suspect]
     Active Substance: ZOLEDRONIC ACID
     Dosage: 5 MG/100 ML
     Route: 042
     Dates: start: 201501

REACTIONS (10)
  - Osteonecrosis of jaw [Not Recovered/Not Resolved]
  - Bone loss [Unknown]
  - Fall [Unknown]
  - Impaired healing [Not Recovered/Not Resolved]
  - Hypophagia [Unknown]
  - Depression [Unknown]
  - Gingival ulceration [Unknown]
  - Tooth fracture [Not Recovered/Not Resolved]
  - Oral discomfort [Unknown]
  - Mastication disorder [Unknown]

NARRATIVE: CASE EVENT DATE: 201502
